FAERS Safety Report 23597168 (Version 9)
Quarter: 2025Q1

REPORT INFORMATION
  Report Type: Report from Study
  Country: JP (occurrence: JP)
  Receive Date: 20240305
  Receipt Date: 20250324
  Transmission Date: 20250409
  Serious: Yes (Death, Other)
  Sender: GENMAB
  Company Number: JP-GENMAB-2024-00258AA

PATIENT
  Age: 59 Year
  Sex: Male
  Weight: 48.4 kg

DRUGS (13)
  1. EPKINLY [Suspect]
     Active Substance: EPCORITAMAB-BYSP
     Indication: Diffuse large B-cell lymphoma refractory
     Route: 058
     Dates: start: 20240116, end: 20240116
  2. EPKINLY [Suspect]
     Active Substance: EPCORITAMAB-BYSP
     Route: 058
     Dates: start: 20240123, end: 20240123
  3. PREDNISOLONE [Concomitant]
     Active Substance: PREDNISOLONE
     Indication: Prophylaxis
     Dates: start: 20240116, end: 20240126
  4. DIPHENHYDRAMINE [Concomitant]
     Active Substance: DIPHENHYDRAMINE
     Indication: Prophylaxis
     Dates: start: 20240116, end: 20240123
  5. ACETAMINOPHEN [Concomitant]
     Active Substance: ACETAMINOPHEN
     Indication: Prophylaxis
     Dates: start: 202401, end: 202401
  6. RITUXIMAB [Concomitant]
     Active Substance: RITUXIMAB
     Dates: start: 202310
  7. RITUXIMAB [Concomitant]
     Active Substance: RITUXIMAB
     Dates: start: 20231116
  8. RITUXIMAB [Concomitant]
     Active Substance: RITUXIMAB
     Dates: start: 20231208
  9. RITUXIMAB [Concomitant]
     Active Substance: RITUXIMAB
     Dates: start: 20240105
  10. POLATUZUMAB VEDOTIN [Concomitant]
     Active Substance: POLATUZUMAB VEDOTIN
     Dates: start: 202310
  11. POLATUZUMAB VEDOTIN [Concomitant]
     Active Substance: POLATUZUMAB VEDOTIN
     Dates: start: 20231116
  12. POLATUZUMAB VEDOTIN [Concomitant]
     Active Substance: POLATUZUMAB VEDOTIN
     Dates: start: 20231208
  13. POLATUZUMAB VEDOTIN [Concomitant]
     Active Substance: POLATUZUMAB VEDOTIN
     Dates: start: 20240105

REACTIONS (4)
  - Diffuse large B-cell lymphoma refractory [Fatal]
  - Acute respiratory distress syndrome [Not Recovered/Not Resolved]
  - Atrial fibrillation [Recovering/Resolving]
  - Cytokine release syndrome [Recovering/Resolving]

NARRATIVE: CASE EVENT DATE: 20240101
